FAERS Safety Report 7940170-1 (Version None)
Quarter: 2011Q4

REPORT INFORMATION
  Report Type: 
  Country: None (occurrence: None)
  Receive Date: 20111125
  Receipt Date: 20100517
  Transmission Date: 20120403
  Serious: Yes (Other)
  Sender: FDA-Public Use
  Company Number: PHHY2010IT092707

PATIENT

DRUGS (2)
  1. EVEROLIMUS [Concomitant]
     Dosage: 2 MG, UNK
  2. NEORAL [Suspect]
     Indication: RENAL TRANSPLANT
     Dosage: 2 MG/KG/DAY (DIVIDED INTO TWO DAILY DOSES)

REACTIONS (1)
  - HEPATIC ARTERY STENOSIS [None]
